FAERS Safety Report 5753770-4 (Version None)
Quarter: 2008Q2

REPORT INFORMATION
  Report Type: 
  Country: None (occurrence: None)
  Receive Date: 20080527
  Receipt Date: 20080514
  Transmission Date: 20081010
  Serious: Yes (Other)
  Sender: FDA-Public Use
  Company Number: 2008SP009012

PATIENT
  Age: 23 Year
  Sex: Female

DRUGS (3)
  1. NOXAFIL [Suspect]
     Indication: DRUG USE FOR UNKNOWN INDICATION
     Dates: start: 20080101, end: 20080101
  2. VINCRISTINE [Suspect]
     Indication: DRUG USE FOR UNKNOWN INDICATION
     Dates: end: 20080101
  3. NEUPOGEN [Concomitant]

REACTIONS (3)
  - ARTHRALGIA [None]
  - GASTROENTERITIS SALMONELLA [None]
  - MYALGIA [None]
